FAERS Safety Report 24248705 (Version 1)
Quarter: 2024Q3

REPORT INFORMATION
  Report Type: Spontaneous
  Country: US (occurrence: None)
  Receive Date: 20240823
  Receipt Date: 20240823
  Transmission Date: 20241016
  Serious: No
  Sender: Public
  Company Number: None

PATIENT
  Age: 50 Year
  Sex: Female

DRUGS (1)
  1. COSENTYX [Suspect]
     Active Substance: SECUKINUMAB
     Indication: Ankylosing spondylitis
     Dosage: OTHER FREQUENCY : DAY 28(DOSE 5)THEN EVERY 4 WEEKS,AS DIRECTED;?
     Route: 058
     Dates: start: 202404

REACTIONS (2)
  - Seizure [None]
  - Cerebral disorder [None]
